FAERS Safety Report 10862853 (Version 1)
Quarter: 2015Q1

REPORT INFORMATION
  Report Type: Spontaneous
  Country: None (occurrence: None)
  Receive Date: 20150219
  Receipt Date: 20150219
  Transmission Date: 20150721
  Serious: No
  Sender: FDA-Public Use
  Company Number: None

PATIENT
  Age: 83 Year
  Sex: Male

DRUGS (1)
  1. ZYTIGA [Suspect]
     Active Substance: ABIRATERONE ACETATE
     Indication: PROSTATE CANCER
     Dosage: ON HOLD
     Route: 048
     Dates: start: 20141105

REACTIONS (2)
  - Therapy cessation [None]
  - Laboratory test abnormal [None]

NARRATIVE: CASE EVENT DATE: 20150216
